FAERS Safety Report 21637644 (Version 1)
Quarter: 2022Q4

REPORT INFORMATION
  Report Type: Report from Study
  Country: US (occurrence: None)
  Receive Date: 20221124
  Receipt Date: 20221124
  Transmission Date: 20230113
  Serious: Yes (Other)
  Sender: FDA-Public Use
  Company Number: US-Merck Healthcare KGaA-9367054

PATIENT
  Age: 53 Year
  Sex: Female
  Weight: 104 kg

DRUGS (10)
  1. REBIF [Suspect]
     Active Substance: INTERFERON BETA-1A
     Indication: Multiple sclerosis
     Dosage: 0.5 ML?REFILLED DATE: 10 DEC 2021
     Route: 058
     Dates: start: 20211210
  2. MAGNESIUM OXIDE [Concomitant]
     Active Substance: MAGNESIUM OXIDE
     Indication: Product used for unknown indication
     Route: 048
  3. VITAMIN D2 [Concomitant]
     Active Substance: ERGOCALCIFEROL
     Indication: Product used for unknown indication
     Dosage: (50000 UNIT)
     Route: 048
  4. FARXIGA [Concomitant]
     Active Substance: DAPAGLIFLOZIN PROPANEDIOL
     Indication: Product used for unknown indication
     Route: 048
  5. JANUMET XR [Concomitant]
     Active Substance: METFORMIN HYDROCHLORIDE\SITAGLIPTIN PHOSPHATE
     Indication: Product used for unknown indication
     Dosage: 50 MG- 100 MG EXTENDED ?WITH EACH MEAL
     Route: 048
  6. HUMALOG JUNIOR KWIKPEN [Concomitant]
     Active Substance: INSULIN LISPRO
     Indication: Product used for unknown indication
     Dosage: 100 UNIT/ML?HALF UNIT PEN
     Route: 058
  7. GABAPENTIN [Concomitant]
     Active Substance: GABAPENTIN
     Indication: Product used for unknown indication
     Route: 048
  8. HEMOCYTE PLUS [Concomitant]
     Indication: Product used for unknown indication
     Route: 048
  9. BACLOFEN [Concomitant]
     Active Substance: BACLOFEN
     Indication: Product used for unknown indication
     Route: 048
  10. HYDROCHLOROTHIAZIDE\IRBESARTAN [Concomitant]
     Active Substance: HYDROCHLOROTHIAZIDE\IRBESARTAN
     Indication: Product used for unknown indication
     Dosage: 150MG-12.5MG
     Route: 048

REACTIONS (9)
  - Altered state of consciousness [Unknown]
  - Spinal stenosis [Unknown]
  - Myelitis [Unknown]
  - Demyelination [Unknown]
  - Intervertebral disc protrusion [Unknown]
  - Vertebral osteophyte [Unknown]
  - Vertebral foraminal stenosis [Unknown]
  - Spinal flattening [Unknown]
  - Insomnia [Unknown]
